FAERS Safety Report 4859925-5 (Version None)
Quarter: 2005Q4

REPORT INFORMATION
  Report Type: 
  Country: None (occurrence: None)
  Receive Date: 20051219
  Receipt Date: 20051108
  Transmission Date: 20060501
  Serious: No
  Sender: FDA-Public Use
  Company Number: US-BRISTOL-MYERS SQUIBB COMPANY-13171616

PATIENT

DRUGS (1)
  1. DOVONEX [Suspect]
     Route: 061

REACTIONS (1)
  - RASH [None]
